FAERS Safety Report 9609744 (Version 1)
Quarter: 2013Q4

REPORT INFORMATION
  Report Type: Spontaneous
  Country: US (occurrence: None)
  Receive Date: 20131008
  Receipt Date: 20131008
  Transmission Date: 20140711
  Serious: Yes (Life-Threatening)
  Sender: FDA-Public Use
  Company Number: None

PATIENT
  Age: 51 Year
  Sex: Female
  Weight: 72 kg

DRUGS (10)
  1. AFINITOR 10MG NOVARTIS [Suspect]
     Indication: BREAST CANCER METASTATIC
     Route: 048
     Dates: start: 20130808, end: 20130831
  2. AFINITOR 10MG NOVARTIS [Suspect]
     Indication: METASTASES TO BONE
     Route: 048
     Dates: start: 20130808, end: 20130831
  3. EXEMESTANE [Concomitant]
  4. XGEVA 120 MG [Concomitant]
  5. OMEPRAZOLE 20 MG [Concomitant]
  6. CELECOXIB 200 MG [Concomitant]
  7. DULOXETINE 30 MG [Concomitant]
  8. MULTIVITAMIN [Concomitant]
  9. CALCIUM [Concomitant]
  10. VITAMIN D [Concomitant]

REACTIONS (6)
  - Dyspnoea [None]
  - Cough [None]
  - Fatigue [None]
  - Chest discomfort [None]
  - Nasopharyngitis [None]
  - Pneumonia [None]
